FAERS Safety Report 6792784-2 (Version None)
Quarter: 2010Q2

REPORT INFORMATION
  Report Type: 
  Country: None (occurrence: None)
  Receive Date: 20100624
  Receipt Date: 20081013
  Transmission Date: 20101027
  Serious: No
  Sender: FDA-Public Use
  Company Number: US-PFIZER INC-2008085883

PATIENT

DRUGS (2)
  1. GEODON [Suspect]
  2. DEPAKOTE [Suspect]

REACTIONS (1)
  - BREAST ENGORGEMENT [None]
